FAERS Safety Report 18397687 (Version 1)
Quarter: 2020Q4

REPORT INFORMATION
  Report Type: Spontaneous
  Country: US (occurrence: US)
  Receive Date: 20201018
  Receipt Date: 20201018
  Transmission Date: 20210114
  Serious: No
  Sender: FDA-Public Use
  Company Number: None

PATIENT
  Age: 58 Year
  Sex: Female
  Weight: 55.35 kg

DRUGS (1)
  1. CROMOLYN SODIUM, ORAL SOLUTION, CONCENTRATE 100MG/5ML [Suspect]
     Active Substance: CROMOLYN SODIUM
     Indication: HYPERSENSITIVITY
     Dosage: ?          OTHER STRENGTH:MG/5ML;QUANTITY:2 AMPULES;?
     Route: 048
     Dates: start: 20201011, end: 20201012

REACTIONS (2)
  - Nausea [None]
  - Product taste abnormal [None]

NARRATIVE: CASE EVENT DATE: 20201011
